FAERS Safety Report 6329124-9 (Version None)
Quarter: 2009Q3

REPORT INFORMATION
  Report Type: 
  Country: None (occurrence: None)
  Receive Date: 20090826
  Receipt Date: 20090813
  Transmission Date: 20100115
  Serious: Yes (Other)
  Sender: FDA-Public Use
  Company Number: CA-ELI_LILLY_AND_COMPANY-CA200905002535

PATIENT
  Age: 45 Year
  Sex: Male

DRUGS (5)
  1. CYMBALTA [Suspect]
     Indication: AFFECTIVE DISORDER
     Dosage: 60 MG, DAILY (1/D)
     Route: 048
  2. CYMBALTA [Suspect]
     Dosage: 90 MG, DAILY (1/D)
     Route: 048
     Dates: start: 20090501
  3. HUMALOG [Concomitant]
  4. ALTACE [Concomitant]
     Dosage: 10 MG, DAILY (1/D)
     Route: 048
  5. CRESTOR [Concomitant]
     Dosage: 10 MG, DAILY (1/D)
     Route: 048

REACTIONS (2)
  - DRUG INEFFECTIVE [None]
  - HYPOGLYCAEMIA [None]
